FAERS Safety Report 5451678-5 (Version None)
Quarter: 2007Q3

REPORT INFORMATION
  Report Type: 
  Country: None (occurrence: None)
  Receive Date: 20070913
  Receipt Date: 20070904
  Transmission Date: 20080115
  Serious: Yes (Other)
  Sender: FDA-Public Use
  Company Number: US-PFIZER INC-2007074826

PATIENT
  Sex: Female
  Weight: 77.1 kg

DRUGS (8)
  1. LIPITOR [Suspect]
     Indication: BLOOD CHOLESTEROL
  2. LIPITOR [Suspect]
  3. OXYBUTYNIN CHLORIDE [Concomitant]
  4. HYDROCHLOROTHIAZIDE [Concomitant]
  5. LISINOPRIL [Concomitant]
  6. ACTOS [Concomitant]
     Indication: DIABETES MELLITUS
  7. FOSAMAX [Concomitant]
  8. ASPIRIN [Concomitant]

REACTIONS (6)
  - ANXIETY [None]
  - CHEST PAIN [None]
  - FATIGUE [None]
  - INSOMNIA [None]
  - MUSCLE SPASMS [None]
  - RESTLESSNESS [None]
